FAERS Safety Report 4533505-3 (Version None)
Quarter: 2004Q4

REPORT INFORMATION
  Report Type: 
  Country: None (occurrence: None)
  Receive Date: 20041221
  Receipt Date: 20041115
  Transmission Date: 20050328
  Serious: Yes (Death, Other)
  Sender: FDA-Public Use
  Company Number: US-MERCK-0411USA02653

PATIENT
  Age: 75 Year
  Sex: Male
  Weight: 59 kg

DRUGS (7)
  1. VIOXX [Suspect]
     Indication: OSTEOARTHRITIS
     Route: 048
     Dates: start: 20000101, end: 20020910
  2. ZOLOFT [Concomitant]
     Route: 065
  3. PREDNISONE [Concomitant]
     Route: 065
  4. PREVACID [Concomitant]
     Route: 065
  5. ASPIRIN [Concomitant]
     Route: 065
  6. COUMADIN [Concomitant]
     Route: 065
     Dates: start: 19951001
  7. LOPRESSOR [Concomitant]
     Route: 065

REACTIONS (8)
  - ACUTE MYOCARDIAL INFARCTION [None]
  - CARDIOGENIC SHOCK [None]
  - CORONARY ARTERY ATHEROSCLEROSIS [None]
  - CORONARY ARTERY OCCLUSION [None]
  - HYDROCELE [None]
  - LOBAR PNEUMONIA [None]
  - SUDDEN DEATH [None]
  - UPPER GASTROINTESTINAL HAEMORRHAGE [None]
